FAERS Safety Report 21370930 (Version 1)
Quarter: 2022Q3

REPORT INFORMATION
  Report Type: Spontaneous
  Country: US (occurrence: None)
  Receive Date: 20220923
  Receipt Date: 20220923
  Transmission Date: 20221027
  Serious: Yes (Life-Threatening, Hospitalization, Other)
  Sender: FDA-Public Use
  Company Number: 2022A327444

PATIENT
  Age: 27896 Day
  Sex: Male
  Weight: 70.8 kg

DRUGS (3)
  1. DURVALUMAB [Suspect]
     Active Substance: DURVALUMAB
     Indication: Bladder cancer
     Dosage: ONCE A WEEK
     Route: 042
     Dates: start: 20220413, end: 20220414
  2. TREMELIMUMAB [Suspect]
     Active Substance: TREMELIMUMAB
     Indication: Bladder cancer
     Dosage: ONCE A WEEK
     Route: 042
     Dates: start: 20220413, end: 20220414
  3. ENFORTUMAB VEDOTIN [Suspect]
     Active Substance: ENFORTUMAB VEDOTIN
     Indication: Bladder cancer
     Dosage: ONCE A WEEK
     Route: 065
     Dates: start: 20220413, end: 20220414

REACTIONS (6)
  - Protein total increased [Not Recovered/Not Resolved]
  - Renal failure [Not Recovered/Not Resolved]
  - Asthenia [Not Recovered/Not Resolved]
  - Muscle atrophy [Not Recovered/Not Resolved]
  - Autoimmune disorder [Not Recovered/Not Resolved]
  - Dyspnoea [Not Recovered/Not Resolved]

NARRATIVE: CASE EVENT DATE: 20220503
